FAERS Safety Report 8525883 (Version 3)
Quarter: 2013Q2

REPORT INFORMATION
  Report Type: Report from Study
  Country: BR (occurrence: BR)
  Receive Date: 20120423
  Receipt Date: 20130626
  Transmission Date: 20140414
  Serious: Yes (Hospitalization)
  Sender: FDA-Public Use
  Company Number: BR-ROCHE-1058403

PATIENT
  Sex: Female
  Weight: 70 kg

DRUGS (1)
  1. ACTEMRA [Suspect]
     Indication: RHEUMATOID ARTHRITIS
     Dosage: INTERRUPTED, RECEIVED MEDICATION FROM SEP 09 TO JAN 12
     Route: 065
     Dates: start: 200909, end: 201201

REACTIONS (2)
  - Tendon disorder [Not Recovered/Not Resolved]
  - Musculoskeletal disorder [Unknown]
